FAERS Safety Report 5631004-9 (Version None)
Quarter: 2008Q1

REPORT INFORMATION
  Report Type: 
  Country: None (occurrence: None)
  Receive Date: 20080219
  Receipt Date: 20080208
  Transmission Date: 20080703
  Serious: Yes (Other)
  Sender: FDA-Public Use
  Company Number: JP-PFIZER INC-2008013110

PATIENT
  Age: 69 Year
  Sex: Male

DRUGS (6)
  1. NORVASC [Suspect]
     Route: 048
  2. CARDENALIN [Suspect]
     Dosage: DAILY DOSE:1MG
     Route: 048
  3. DIOVAN [Suspect]
     Route: 048
  4. DAI MEDINE [Concomitant]
     Route: 048
  5. NICHI E-NATE [Concomitant]
     Route: 048
  6. COLICOOL [Concomitant]
     Route: 048

REACTIONS (1)
  - INTERSTITIAL LUNG DISEASE [None]
